FAERS Safety Report 8978792 (Version 1)
Quarter: 2012Q4

REPORT INFORMATION
  Report Type: 
  Country: US (occurrence: US)
  Receive Date: 20121220
  Receipt Date: 20121220
  Transmission Date: 20130627
  Serious: No
  Sender: FDA-Public Use
  Company Number: US-PFIZER INC-2012318825

PATIENT

DRUGS (3)
  1. LEVOXYL [Suspect]
     Dosage: 125 ug, UNK
  2. LEVOXYL [Suspect]
     Dosage: 50 ug, UNK
  3. SYNTHROID [Suspect]
     Dosage: UNK

REACTIONS (6)
  - Parathyroid disorder [Not Recovered/Not Resolved]
  - Agitation [Not Recovered/Not Resolved]
  - Nervousness [Unknown]
  - Drug hypersensitivity [Unknown]
  - Rash [Unknown]
  - Psychomotor hyperactivity [Unknown]
